FAERS Safety Report 24434668 (Version 1)
Quarter: 2024Q4

REPORT INFORMATION
  Report Type: Spontaneous
  Country: US (occurrence: US)
  Receive Date: 20241014
  Receipt Date: 20241014
  Transmission Date: 20250115
  Serious: Yes (Other)
  Sender: ABBVIE
  Company Number: US-ABBVIE-5954726

PATIENT
  Sex: Male

DRUGS (3)
  1. REFRESH TEARS PF [Suspect]
     Active Substance: CARBOXYMETHYLCELLULOSE SODIUM\GLYCERIN
     Indication: Dry eye
     Dosage: CMC 0.5% AND GLYCERIN 0.9% MULTI-DOSE PRESERVATIVE FREE
     Route: 047
  2. REFRESH TEARS [Suspect]
     Active Substance: CARBOXYMETHYLCELLULOSE SODIUM
     Indication: Dry eye
     Dosage: DOSAGE: 5 MG/ML MULTI-DOSE
     Route: 047
  3. REFRESH CLASSIC [Suspect]
     Active Substance: POLYVINYL ALCOHOL\POVIDONE
     Indication: Product used for unknown indication
     Dosage: UNSPECIFIED REFRESH PRODUCT
     Route: 047

REACTIONS (3)
  - Blindness [Not Recovered/Not Resolved]
  - Product container issue [Not Recovered/Not Resolved]
  - Unevaluable event [Not Recovered/Not Resolved]
